FAERS Safety Report 8233860-7 (Version None)
Quarter: 2012Q1

REPORT INFORMATION
  Report Type: 
  Country: None (occurrence: None)
  Receive Date: 20120326
  Receipt Date: 20120314
  Transmission Date: 20120608
  Serious: Yes (Hospitalization)
  Sender: FDA-Public Use
  Company Number: CA-ELI_LILLY_AND_COMPANY-CA201112000610

PATIENT
  Age: 55 Year
  Sex: Female

DRUGS (17)
  1. BUPROPION HCL [Concomitant]
  2. ESOMEPRAZOLE SODIUM [Concomitant]
  3. FLONASE [Concomitant]
  4. VITAMIN D [Concomitant]
  5. RAMIPRIL [Concomitant]
  6. VENTOLIN [Concomitant]
  7. OXEZE [Concomitant]
  8. CALCIUM CARBONATE [Concomitant]
  9. GABAPENTIN [Concomitant]
  10. MONTELUKAST [Concomitant]
  11. SPIRIVA [Concomitant]
  12. METFORMIN HCL [Concomitant]
  13. HYDROMORPHONE HCL [Concomitant]
  14. PREDNISONE TAB [Concomitant]
  15. ALVESCO [Concomitant]
  16. FORTEO [Suspect]
     Indication: OSTEOPOROSIS
     Dosage: 20 UG, QD
     Route: 058
     Dates: start: 20100818
  17. SENOKOT [Concomitant]

REACTIONS (2)
  - PNEUMONIA [None]
  - ASTHMA [None]
